FAERS Safety Report 7823944-7 (Version None)
Quarter: 2011Q4

REPORT INFORMATION
  Report Type: 
  Country: None (occurrence: None)
  Receive Date: 20111019
  Receipt Date: 20111005
  Transmission Date: 20120403
  Serious: Yes (Death)
  Sender: FDA-Public Use
  Company Number: FR-SANOFI-AVENTIS-2011SA065112

PATIENT
  Age: 39 Year
  Sex: Female

DRUGS (5)
  1. HEPARIN [Concomitant]
     Indication: THROMBOSIS
     Dates: start: 20110831
  2. COROTROPE [Suspect]
     Route: 013
     Dates: start: 20110903, end: 20110903
  3. BISOPROLOL FUMARATE AND HYDROCHLOROTHIAZIDE [Concomitant]
     Indication: HYPERTENSION
  4. ASPIRIN [Concomitant]
     Indication: THROMBOSIS
     Route: 065
     Dates: start: 20110831
  5. COROTROPE [Suspect]
     Route: 013
     Dates: start: 20110903, end: 20110903

REACTIONS (5)
  - TACHYCARDIA [None]
  - BRAIN OEDEMA [None]
  - ACCIDENTAL OVERDOSE [None]
  - HYPOTENSION [None]
  - INCORRECT DOSE ADMINISTERED [None]
